FAERS Safety Report 10078333 (Version 1)
Quarter: 2014Q2

REPORT INFORMATION
  Report Type: Spontaneous
  Country: US (occurrence: US)
  Receive Date: 20140415
  Receipt Date: 20140415
  Transmission Date: 20141212
  Serious: Yes (Hospitalization)
  Sender: FDA-Public Use
  Company Number: US-ASTRAZENECA-2014SE24398

PATIENT
  Age: 23507 Day
  Sex: Male
  Weight: 86.2 kg

DRUGS (4)
  1. NEXIUM [Suspect]
     Indication: GASTROOESOPHAGEAL REFLUX DISEASE
     Route: 048
     Dates: start: 2004, end: 201402
  2. PLAVIX [Concomitant]
     Indication: STENT PLACEMENT
     Route: 048
     Dates: start: 201312
  3. ASPIRIN [Concomitant]
     Route: 048
     Dates: start: 201312
  4. OTHER MEDICATIONS [Concomitant]
     Indication: GASTROOESOPHAGEAL REFLUX DISEASE

REACTIONS (6)
  - Arterial occlusive disease [Unknown]
  - Malaise [Unknown]
  - Gastrooesophageal reflux disease [Not Recovered/Not Resolved]
  - Weight increased [Unknown]
  - Memory impairment [Unknown]
  - Drug dose omission [Not Recovered/Not Resolved]
